FAERS Safety Report 4563925-2 (Version None)
Quarter: 2005Q1

REPORT INFORMATION
  Report Type: 
  Country: None (occurrence: None)
  Receive Date: 20050125
  Receipt Date: 20050125
  Transmission Date: 20050727
  Serious: Yes (Other)
  Sender: FDA-Public Use
  Company Number: None

PATIENT
  Age: 47 Year
  Sex: Female
  Weight: 99.7913 kg

DRUGS (2)
  1. PRIMAXIN [Suspect]
     Indication: BABESIOSIS
     Dosage: 500 MG EVERY 8 HOURS , IV
     Route: 042
     Dates: start: 20041128
  2. PRIMAXIN [Suspect]
     Indication: LYME DISEASE
     Dosage: 500 MG EVERY 8 HOURS , IV
     Route: 042
     Dates: start: 20041128

REACTIONS (1)
  - TOOTH DISCOLOURATION [None]
